FAERS Safety Report 8595698-0 (Version None)
Quarter: 2012Q3

REPORT INFORMATION
  Report Type: 
  Country: None (occurrence: None)
  Receive Date: 20120815
  Receipt Date: 20120807
  Transmission Date: 20120928
  Serious: Yes (Death)
  Sender: FDA-Public Use
  Company Number: PT-ROCHE-1049483

PATIENT
  Sex: Female

DRUGS (5)
  1. SERTRALINA [Concomitant]
     Dates: start: 20120121
  2. SERTRALINA [Concomitant]
     Indication: ANXIETY
     Dates: start: 20111206, end: 20120120
  3. BLINDED BI 201335 [Suspect]
     Indication: HEPATITIS C
     Route: 048
     Dates: start: 20111128, end: 20120226
  4. PEGASYS [Suspect]
     Indication: HEPATITIS C
     Route: 030
     Dates: start: 20111128
  5. COPEGUS [Suspect]
     Indication: HEPATITIS C
     Route: 048
     Dates: start: 20111128, end: 20120226

REACTIONS (13)
  - CARDIO-RESPIRATORY ARREST [None]
  - CHEST PAIN [None]
  - HAEMOTHORAX [None]
  - PERITONEAL HAEMORRHAGE [None]
  - ANXIETY [None]
  - MULTIPLE INJURIES [None]
  - ANAEMIA [None]
  - THROMBOCYTOPENIA [None]
  - FALL [None]
  - COMA [None]
  - BRADYCARDIA [None]
  - HYPOTENSION [None]
  - METABOLIC ACIDOSIS [None]
